FAERS Safety Report 5640218-3 (Version None)
Quarter: 2008Q1

REPORT INFORMATION
  Report Type: 
  Country: None (occurrence: None)
  Receive Date: 20080227
  Receipt Date: 20080207
  Transmission Date: 20080703
  Serious: No
  Sender: FDA-Public Use
  Company Number: US-BAXTER-2008BH001128

PATIENT
  Age: 72 Year
  Sex: Female
  Weight: 99 kg

DRUGS (7)
  1. HEPARIN SODIUM [Suspect]
     Indication: PROPHYLAXIS
     Route: 033
     Dates: start: 20070901
  2. HEPARIN SODIUM [Suspect]
     Route: 033
     Dates: end: 20080101
  3. HEPARIN SODIUM [Suspect]
     Route: 033
     Dates: start: 20080101
  4. HEPARIN SODIUM [Suspect]
     Route: 033
     Dates: start: 20080101
  5. ACTOS [Concomitant]
     Indication: DIABETES MELLITUS
     Dosage: DOSE UNIT:UNKNOWN
     Route: 048
  6. NORVASC [Concomitant]
     Indication: HYPERTENSION
     Dosage: DOSE UNIT:UNKNOWN
     Route: 048
  7. LIPITOR [Concomitant]
     Indication: HYPERCHOLESTEROLAEMIA
     Dosage: DOSE UNIT:UNKNOWN
     Route: 065

REACTIONS (2)
  - HEADACHE [None]
  - STOMACH DISCOMFORT [None]
